FAERS Safety Report 5748828-X (Version None)
Quarter: 2008Q2

REPORT INFORMATION
  Report Type: 
  Country: None (occurrence: None)
  Receive Date: 20080522
  Receipt Date: 20080505
  Transmission Date: 20081010
  Serious: Yes (Hospitalization)
  Sender: FDA-Public Use
  Company Number: 2008AL003414

PATIENT
  Age: 78 Year
  Sex: Female

DRUGS (1)
  1. DIGOXIN TABLETS, UPS (AMIDE) [Suspect]
     Indication: HEART RATE INCREASED
     Dosage: 0.25 MG DAILY PO
     Route: 048
     Dates: start: 20080222, end: 20080415

REACTIONS (5)
  - DECREASED APPETITE [None]
  - MALAISE [None]
  - MUSCLE SPASMS [None]
  - NAUSEA [None]
  - VOMITING [None]
